FAERS Safety Report 12354885 (Version 2)
Quarter: 2016Q2

REPORT INFORMATION
  Report Type: Spontaneous
  Country: SG (occurrence: SG)
  Receive Date: 20160511
  Receipt Date: 20160612
  Transmission Date: 20160815
  Serious: Yes (Other)
  Sender: FDA-Public Use
  Company Number: SG-ROCHE-1755304

PATIENT
  Sex: Male

DRUGS (3)
  1. MONTELUKAST [Concomitant]
     Active Substance: MONTELUKAST SODIUM
  2. BILASTINE [Concomitant]
     Active Substance: BILASTINE
  3. XOLAIR [Suspect]
     Active Substance: OMALIZUMAB
     Indication: URTICARIA CHRONIC
     Route: 065
     Dates: start: 20160407

REACTIONS (3)
  - Feeling cold [Recovered/Resolved]
  - Injection site reaction [Unknown]
  - Chills [Recovered/Resolved]
